FAERS Safety Report 9430351 (Version 1)
Quarter: 2013Q3

REPORT INFORMATION
  Report Type: Spontaneous
  Country: US (occurrence: US)
  Receive Date: 20130730
  Receipt Date: 20130730
  Transmission Date: 20140515
  Serious: Yes (Hospitalization)
  Sender: FDA-Public Use
  Company Number: US-GLAXOSMITHKLINE-A1035439A

PATIENT
  Age: 72 Year
  Sex: Female

DRUGS (6)
  1. TYKERB [Suspect]
     Indication: BREAST CANCER
     Dosage: 1000MG PER DAY
     Route: 048
     Dates: start: 20130624
  2. DEXAMETHASONE [Concomitant]
  3. ONDANSETRON [Concomitant]
  4. HYDROXYZINE PAMOATE [Concomitant]
  5. FLUCONAZOLE [Concomitant]
  6. CLOPIDOGREL [Concomitant]

REACTIONS (4)
  - Transfusion [Recovered/Resolved]
  - Diarrhoea [Recovered/Resolved]
  - Pruritus generalised [Recovered/Resolved]
  - Dehydration [Recovered/Resolved]
